FAERS Safety Report 12566129 (Version 2)
Quarter: 2016Q3

REPORT INFORMATION
  Report Type: Spontaneous
  Country: US (occurrence: US)
  Receive Date: 20160718
  Receipt Date: 20160809
  Transmission Date: 20161109
  Serious: No
  Sender: FDA-Public Use
  Company Number: US-GLAXOSMITHKLINE-US2016099064

PATIENT
  Age: 56 Year
  Sex: Female

DRUGS (2)
  1. TANZEUM [Suspect]
     Active Substance: ALBIGLUTIDE
     Indication: PRODUCT USED FOR UNKNOWN INDICATION
     Dosage: 50 MG, WE
     Dates: start: 201604
  2. TANZEUM [Suspect]
     Active Substance: ALBIGLUTIDE
     Dosage: 50 MG, WE

REACTIONS (7)
  - Device use error [Unknown]
  - Device breakage [Unknown]
  - Product quality issue [Unknown]
  - Accidental exposure to product [Unknown]
  - Pain in extremity [Unknown]
  - Device leakage [Unknown]
  - Rash [Unknown]

NARRATIVE: CASE EVENT DATE: 20160711
